FAERS Safety Report 13024412 (Version 2)
Quarter: 2017Q1

REPORT INFORMATION
  Report Type: Report from Study
  Country: None (occurrence: AU)
  Receive Date: 20161213
  Receipt Date: 20170117
  Transmission Date: 20170428
  Serious: Yes (Other)
  Sender: FDA-Public Use
  Company Number: AU-ABBVIE-16P-008-1805428-00

PATIENT
  Sex: Male

DRUGS (1)
  1. DUODOPA [Suspect]
     Active Substance: CARBIDOPA\LEVODOPA
     Indication: PARKINSON^S DISEASE
     Dosage: 16 HOUR INFUSION
     Route: 050
     Dates: start: 20130520

REACTIONS (15)
  - Language disorder [Unknown]
  - Visual impairment [Unknown]
  - Muscle rigidity [Unknown]
  - Postural reflex impairment [Unknown]
  - Abasia [Unknown]
  - Dysarthria [Unknown]
  - Cognitive disorder [Unknown]
  - Movement disorder [Unknown]
  - Disorientation [Unknown]
  - Dyskinesia [Unknown]
  - General physical health deterioration [Unknown]
  - Dysstasia [Unknown]
  - Nightmare [Unknown]
  - Bradykinesia [Unknown]
  - Activities of daily living impaired [Unknown]
